FAERS Safety Report 9328447 (Version 1)
Quarter: 2013Q2

REPORT INFORMATION
  Report Type: Spontaneous
  Country: US (occurrence: US)
  Receive Date: 20130604
  Receipt Date: 20130604
  Transmission Date: 20140414
  Serious: Yes (Hospitalization)
  Sender: FDA-Public Use
  Company Number: US-SANOFI-AVENTIS-2012SA068787

PATIENT
  Age: 72 Year
  Sex: Female
  Weight: 69 kg

DRUGS (22)
  1. LANTUS [Suspect]
     Indication: DIABETES MELLITUS
     Dosage: DOSE:6 UNIT(S)
     Route: 058
  2. AFLIBERCEPT [Suspect]
     Indication: DIABETIC RETINAL OEDEMA
     Route: 031
     Dates: start: 20120703
  3. ALL OTHER THERAPEUTIC PRODUCTS [Concomitant]
     Indication: MENOPAUSE
     Dates: start: 1993
  4. HYDROCODONE [Concomitant]
     Indication: BACK PAIN
     Dates: start: 2010
  5. HYDROCODONE [Concomitant]
     Indication: NERVE COMPRESSION
     Dates: start: 2010
  6. HYDROCODONE [Concomitant]
     Indication: BACK PAIN
     Route: 048
     Dates: start: 20110804
  7. HYDROCODONE [Concomitant]
     Indication: NERVE COMPRESSION
     Route: 048
     Dates: start: 20110804
  8. TYLENOL [Concomitant]
     Indication: BACK PAIN
     Route: 048
     Dates: start: 201112
  9. ALL OTHER THERAPEUTIC PRODUCTS [Concomitant]
     Indication: ARTHRALGIA
  10. DIPHENHYDRAMINE HYDROCHLORIDE [Concomitant]
     Indication: HYPERSENSITIVITY
     Route: 048
     Dates: start: 2008
  11. ASPIRIN [Concomitant]
     Indication: CARDIOVASCULAR EVENT PROPHYLAXIS
     Route: 048
     Dates: start: 2001
  12. MULTIVITAMINS [Concomitant]
     Dates: start: 1960
  13. CRESTOR /UNK/ [Concomitant]
     Indication: HYPERCHOLESTEROLAEMIA
     Route: 048
     Dates: start: 2007
  14. B COMPLEX [Concomitant]
     Route: 048
     Dates: start: 2010
  15. ALL OTHER THERAPEUTIC PRODUCTS [Concomitant]
     Indication: INFECTION PROPHYLAXIS
     Route: 048
     Dates: start: 2001
  16. IBUPROFEN [Concomitant]
     Indication: BACK PAIN
     Route: 048
     Dates: start: 2010
  17. IBUPROFEN [Concomitant]
     Indication: ARTHRALGIA
     Route: 048
     Dates: start: 2010
  18. IBUPROFEN [Concomitant]
     Indication: BACK PAIN
     Route: 048
     Dates: start: 201112
  19. IBUPROFEN [Concomitant]
     Indication: ARTHRALGIA
     Route: 048
     Dates: start: 201112
  20. NOVOLOG [Concomitant]
     Indication: DIABETES MELLITUS
     Dosage: DOSE:3 UNIT(S)
     Route: 058
     Dates: start: 20120501
  21. NAPROXEN SODIUM [Concomitant]
     Dosage: 4 IN ONE DAY
     Route: 048
     Dates: start: 201205
  22. LORCET PLUS [Concomitant]

REACTIONS (2)
  - Hypoglycaemia [Recovered/Resolved]
  - Mental status changes [Recovered/Resolved]
